FAERS Safety Report 17563423 (Version 1)
Quarter: 2020Q1

REPORT INFORMATION
  Report Type: Spontaneous
  Country: GB (occurrence: GB)
  Receive Date: 20200320
  Receipt Date: 20200320
  Transmission Date: 20200409
  Serious: Yes (Life-Threatening, Hospitalization)
  Sender: FDA-Public Use
  Company Number: GB-ACCORD-176091

PATIENT
  Age: 72 Year
  Sex: Female

DRUGS (3)
  1. METHOTREXATE. [Suspect]
     Active Substance: METHOTREXATE
     Indication: PRODUCT USED FOR UNKNOWN INDICATION
     Route: 048
     Dates: end: 20200218
  2. PARACETAMOL [Concomitant]
     Active Substance: ACETAMINOPHEN
  3. TRIMETHOPRIM/TRIMETHOPRIM LACTATE/TRIMETHOPRIM SULFATE [Interacting]
     Active Substance: TRIMETHOPRIM
     Indication: URINARY TRACT INFECTION

REACTIONS (7)
  - Platelet count decreased [Unknown]
  - Blood folate decreased [Unknown]
  - Pancytopenia [Recovering/Resolving]
  - Vitamin B12 decreased [Unknown]
  - Neutrophil count decreased [Unknown]
  - White blood cell count decreased [Unknown]
  - Drug interaction [Unknown]

NARRATIVE: CASE EVENT DATE: 20200212
